FAERS Safety Report 7737928-0 (Version None)
Quarter: 2011Q3

REPORT INFORMATION
  Report Type: 
  Country: None (occurrence: None)
  Receive Date: 20110906
  Receipt Date: 20110822
  Transmission Date: 20111222
  Serious: Yes (Hospitalization)
  Sender: FDA-Public Use
  Company Number: AUR-APL-2011-04756

PATIENT
  Age: 12 Year
  Sex: Male

DRUGS (3)
  1. ZONISAMIDE [Concomitant]
  2. VALPROIC ACID [Suspect]
     Indication: COMPLEX PARTIAL SEIZURES
  3. LEVETIRACETAM [Suspect]
     Indication: COMPLEX PARTIAL SEIZURES
     Dosage: 800 MG (400 MG, 2 IN 1 D) 1500 MG (750 MG, 2 IN 1 D) (1400 MG, 1 D) (1700 MG, 1 D)

REACTIONS (2)
  - DRUG INEFFECTIVE [None]
  - MYOCLONUS [None]
